FAERS Safety Report 8115786-2 (Version None)
Quarter: 2012Q1

REPORT INFORMATION
  Report Type: 
  Country: None (occurrence: None)
  Receive Date: 20120206
  Receipt Date: 20120126
  Transmission Date: 20120608
  Serious: Yes (Disabling, Other)
  Sender: FDA-Public Use
  Company Number: DE-ROCHE-1023806

PATIENT
  Age: 60 Year
  Sex: Female
  Weight: 70 kg

DRUGS (13)
  1. INSUMAN COMB 50 [Concomitant]
  2. METOPROLOL TARTRATE [Concomitant]
  3. AMLODIPINE [Concomitant]
  4. XELODA [Suspect]
     Indication: BREAST CANCER METASTATIC
     Route: 048
     Dates: start: 20110520
  5. LYRICA [Concomitant]
  6. LORAZEPAM [Concomitant]
  7. OMEPRAZOLE [Concomitant]
  8. CYMBALTA [Concomitant]
  9. LEVOTHYROXINE SODIUM [Concomitant]
  10. MAGNESIUM [Concomitant]
  11. VITAMIN B-12 [Concomitant]
  12. ALENDRONATE SODIUM [Concomitant]
  13. REPAGLINID [Concomitant]
     Route: 002

REACTIONS (3)
  - SKIN HAEMORRHAGE [None]
  - BLISTER [None]
  - PALMAR-PLANTAR ERYTHRODYSAESTHESIA SYNDROME [None]
